FAERS Safety Report 6454680-X (Version None)
Quarter: 2009Q4

REPORT INFORMATION
  Report Type: 
  Country: None (occurrence: None)
  Receive Date: 20091118
  Receipt Date: 20091105
  Transmission Date: 20100525
  Serious: Yes (Death)
  Sender: FDA-Public Use
  Company Number: DE-1171471

PATIENT
  Age: 78 Year
  Sex: Male

DRUGS (5)
  1. FLUORESCITE [Suspect]
     Indication: ANGIOGRAM RETINA
     Dosage: 2.5 ML, INTRAVENOUS BOLUS
     Route: 040
     Dates: start: 20091020, end: 20091020
  2. NITRENDIPINO RATIOPHARM (NITRENDIPINE) [Concomitant]
  3. L-THYROXIN BETA (LEVOTHYROXINE SODIUM) [Concomitant]
  4. LISINOPRIL RATIOPHARM (LISINOPRIL) [Concomitant]
  5. UROXATRAL [Concomitant]

REACTIONS (3)
  - CIRCULATORY COLLAPSE [None]
  - MYOCARDIAL INFARCTION [None]
  - POST PROCEDURAL COMPLICATION [None]
